FAERS Safety Report 4757641-1 (Version None)
Quarter: 2005Q3

REPORT INFORMATION
  Report Type: 
  Country: None (occurrence: None)
  Receive Date: 20050831
  Receipt Date: 20050720
  Transmission Date: 20060218
  Serious: Yes (Hospitalization, Disabling)
  Sender: FDA-Public Use
  Company Number: US-GLAXOSMITHKLINE-A0567040A

PATIENT
  Age: 49 Year
  Sex: Female
  Weight: 79.5 kg

DRUGS (3)
  1. REQUIP [Suspect]
     Indication: RESTLESS LEGS SYNDROME
     Dosage: .5MG PER DAY
     Route: 048
  2. CELEXA [Suspect]
     Route: 048
     Dates: start: 20050720
  3. ZOFRAN [Suspect]
     Route: 030

REACTIONS (2)
  - DRUG INTERACTION [None]
  - NAUSEA [None]
